FAERS Safety Report 12401938 (Version 3)
Quarter: 2019Q2

REPORT INFORMATION
  Report Type: Report from Study
  Country: US (occurrence: US)
  Receive Date: 20160525
  Receipt Date: 20190506
  Transmission Date: 20190711
  Serious: No
  Sender: FDA-Public Use
  Company Number: US-SA-2015SA209556

PATIENT
  Age: 59 Year
  Sex: Female

DRUGS (1)
  1. INSULIN GLARGINE [Suspect]
     Active Substance: INSULIN GLARGINE
     Indication: TYPE 2 DIABETES MELLITUS
     Dosage: 85 IU, QD
     Dates: start: 201501

REACTIONS (5)
  - Nasopharyngitis [Unknown]
  - Wrong technique in product usage process [Unknown]
  - Injection site discolouration [Unknown]
  - Nervousness [Unknown]
  - Upper respiratory tract infection [Unknown]
